FAERS Safety Report 4319103-5 (Version None)
Quarter: 2004Q1

REPORT INFORMATION
  Report Type: 
  Country: None (occurrence: None)
  Receive Date: 20040318
  Receipt Date: 20040318
  Transmission Date: 20041129
  Serious: Yes (Hospitalization)
  Sender: FDA-Public Use
  Company Number: None

PATIENT
  Age: 2 Month
  Sex: Female
  Weight: 4.536 kg

DRUGS (4)
  1. PSEUDEOPHEDRINE HCL [Suspect]
     Indication: DIZZINESS
     Dosage: 3O MG 1-2 QD ORAL
     Route: 048
     Dates: start: 20030610, end: 20030617
  2. PSEUDEOPHEDRINE HCL [Suspect]
     Indication: NAUSEA
     Dosage: 3O MG 1-2 QD ORAL
     Route: 048
     Dates: start: 20030610, end: 20030617
  3. PSEUDEOPHEDRINE HCL [Suspect]
     Indication: PYREXIA
     Dosage: 3O MG 1-2 QD ORAL
     Route: 048
     Dates: start: 20030610, end: 20030617
  4. PSEUDEOPHEDRINE HCL [Suspect]
     Indication: SINUSITIS
     Dosage: 3O MG 1-2 QD ORAL
     Route: 048
     Dates: start: 20030610, end: 20030617

REACTIONS (2)
  - INGUINAL HERNIA [None]
  - MATERNAL DRUGS AFFECTING FOETUS [None]
